FAERS Safety Report 8773057 (Version 1)
Quarter: 2012Q4

REPORT INFORMATION
  Report Type: 
  Country: US (occurrence: US)
  Receive Date: 20120908
  Receipt Date: 20120908
  Transmission Date: 20130627
  Serious: Yes (Life-Threatening, Other)
  Sender: FDA-Public Use
  Company Number: US-ABBOTT-12P-163-0975735-00

PATIENT

DRUGS (2)
  1. HUMIRA PRE-FILLED SYRINGE [Suspect]
     Indication: PRODUCT USED FOR UNKNOWN INDICATION
  2. IV ANTIBIOTICS [Suspect]
     Indication: INFECTION

REACTIONS (7)
  - Blood potassium decreased [Unknown]
  - Infection [Unknown]
  - Abdominal abscess [Unknown]
  - Pyrexia [Unknown]
  - Loss of consciousness [Recovered/Resolved]
  - Cholecystectomy [Unknown]
  - Blindness [Unknown]
